FAERS Safety Report 5049781-7 (Version None)
Quarter: 2006Q3

REPORT INFORMATION
  Report Type: 
  Country: None (occurrence: None)
  Receive Date: 20060706
  Receipt Date: 20060623
  Transmission Date: 20061208
  Serious: Yes (Hospitalization)
  Sender: FDA-Public Use
  Company Number: 2006-UK-02955UK

PATIENT
  Age: 75 Year
  Sex: Male
  Weight: 95 kg

DRUGS (10)
  1. AGGRENOX [Suspect]
     Indication: CEREBROVASCULAR ACCIDENT
     Dosage: 400MG/50MG, PO
     Route: 048
     Dates: start: 20060113
  2. AGGRENOX [Suspect]
     Indication: PROPHYLAXIS
     Dosage: 400MG/50MG, PO
     Route: 048
     Dates: start: 20060113
  3. MICARDIS [Suspect]
     Indication: CEREBROVASCULAR ACCIDENT
     Dosage: 80 MG, PO
     Route: 048
     Dates: start: 20060113
  4. MICARDIS [Suspect]
     Indication: PROPHYLAXIS
     Dosage: 80 MG, PO
     Route: 048
     Dates: start: 20060113
  5. CLOPIDOGREL [Suspect]
     Indication: CEREBROVASCULAR ACCIDENT
     Dosage: 75 MG, PO
     Route: 048
     Dates: start: 20060113
  6. CLOPIDOGREL [Suspect]
     Indication: PROPHYLAXIS
     Dosage: 75 MG, PO
     Route: 048
     Dates: start: 20060113
  7. PLACEBO (BLIND) [Suspect]
     Indication: CEREBROVASCULAR ACCIDENT
     Dosage: BLINDED STUDY DRUG, PO
     Route: 048
     Dates: start: 20060113
  8. PLACEBO (BLIND) [Suspect]
     Indication: PROPHYLAXIS
     Dosage: BLINDED STUDY DRUG, PO
     Route: 048
     Dates: start: 20060113
  9. VASOTEC [Suspect]
     Indication: HYPERTENSION
     Dosage: 20 MG, PO
     Route: 048
  10. HYDROCHLOROTHIAZIDE [Suspect]
     Indication: HYPERTENSION
     Dosage: 6.25 MG, PO
     Route: 048
     Dates: end: 20060602

REACTIONS (6)
  - ANAEMIA [None]
  - ATRIOVENTRICULAR BLOCK SECOND DEGREE [None]
  - CARDIAC MURMUR [None]
  - DEMENTIA [None]
  - ORTHOSTATIC HYPOTENSION [None]
  - SYNCOPE [None]
